FAERS Safety Report 7475441-9 (Version None)
Quarter: 2011Q2

REPORT INFORMATION
  Report Type: 
  Country: None (occurrence: None)
  Receive Date: 20110512
  Receipt Date: 20110505
  Transmission Date: 20111010
  Serious: Yes (Death)
  Sender: FDA-Public Use
  Company Number: DE-PFIZER INC-2011096918

PATIENT
  Age: 79 Year
  Sex: Male
  Weight: 119.6 kg

DRUGS (8)
  1. ASPIRIN [Concomitant]
     Dosage: 100 MG, 1X/DAY
     Route: 048
     Dates: start: 19910101
  2. LEVOTHYROXINE SODIUM [Concomitant]
     Dosage: 125 UG, 1X/DAY
  3. TESTOSTERONE [Concomitant]
     Dosage: 50 MG, 1X/DAY
  4. PIRETANIDE SODIUM [Concomitant]
     Dosage: 3 MG, 1X/DAY
  5. SOMATROPIN RDNA [Suspect]
     Indication: HYPOPITUITARISM
     Dosage: 0.4 MG, 1X/DAY
     Dates: start: 20090509
  6. METFORMIN [Concomitant]
     Dosage: 1000 MG, 1X/DAY
  7. HYDROCORTISONE [Concomitant]
     Dosage: 15 MG, 1X/DAY
  8. CONCOR [Concomitant]
     Dosage: 5 MG, 1X/DAY

REACTIONS (1)
  - CEREBROVASCULAR ACCIDENT [None]
